FAERS Safety Report 7300429-8 (Version None)
Quarter: 2011Q1

REPORT INFORMATION
  Report Type: 
  Country: None (occurrence: None)
  Receive Date: 20110217
  Receipt Date: 20110209
  Transmission Date: 20110831
  Serious: Yes (Hospitalization, Other)
  Sender: FDA-Public Use
  Company Number: PHEH2010US03108

PATIENT
  Sex: Female

DRUGS (13)
  1. PROCARDIA [Concomitant]
  2. RELAFEN [Concomitant]
  3. NABUMETONE [Concomitant]
  4. LOVASTATIN [Concomitant]
  5. MULTI-VITAMINS [Concomitant]
  6. HYTRIN [Concomitant]
  7. IRON [Concomitant]
  8. CALCIUM [Concomitant]
  9. RECLAST [Suspect]
     Dosage: 5 MG, ONCE YEARLY
     Dates: start: 20070901
  10. PLAQUENIL [Concomitant]
  11. HYDROXYCHLOROQUINE [Concomitant]
  12. NIFEDIPINE [Concomitant]
     Dosage: 60 MG,
  13. TERAZOSIN [Concomitant]

REACTIONS (17)
  - BRADYCARDIA [None]
  - GINGIVAL DISORDER [None]
  - PAIN IN EXTREMITY [None]
  - BONE DISORDER [None]
  - MYALGIA [None]
  - NECK PAIN [None]
  - HYPOTONIA [None]
  - MUSCULOSKELETAL STIFFNESS [None]
  - DYSPNOEA EXERTIONAL [None]
  - SENSATION OF HEAVINESS [None]
  - WEIGHT DECREASED [None]
  - HYPERTENSION [None]
  - ARTHRITIS [None]
  - LOSS OF CONSCIOUSNESS [None]
  - DYSSTASIA [None]
  - MUSCLE SPASMS [None]
  - BACK PAIN [None]
